FAERS Safety Report 6735110-7 (Version None)
Quarter: 2010Q2

REPORT INFORMATION
  Report Type: 
  Country: None (occurrence: None)
  Receive Date: 20100521
  Receipt Date: 20100512
  Transmission Date: 20101027
  Serious: Yes (Hospitalization)
  Sender: FDA-Public Use
  Company Number: GB-JNJFOC-20100301208

PATIENT
  Sex: Female

DRUGS (2)
  1. LYRINEL XL [Suspect]
     Indication: HYPERTONIC BLADDER
     Route: 048
     Dates: start: 20091130
  2. DIABETES MEDICATION [Suspect]
     Indication: DIABETES MELLITUS
     Route: 065

REACTIONS (1)
  - HYPOGLYCAEMIA [None]
